FAERS Safety Report 8193123-5 (Version None)
Quarter: 2012Q1

REPORT INFORMATION
  Report Type: 
  Country: None (occurrence: None)
  Receive Date: 20120308
  Receipt Date: 20120308
  Transmission Date: 20120608
  Serious: Yes (Other)
  Sender: FDA-Public Use
  Company Number: None

PATIENT
  Age: 30 Year
  Sex: Female
  Weight: 132.44 kg

DRUGS (1)
  1. PHENTERMINE [Suspect]
     Indication: OBESITY
     Dosage: 1X EVERY MORNING
     Dates: start: 20090101, end: 20120301

REACTIONS (3)
  - MENSTRUATION DELAYED [None]
  - MOOD SWINGS [None]
  - MENORRHAGIA [None]
